FAERS Safety Report 4802410-7 (Version None)
Quarter: 2005Q4

REPORT INFORMATION
  Report Type: 
  Country: None (occurrence: None)
  Receive Date: 20051013
  Receipt Date: 20051004
  Transmission Date: 20060501
  Serious: Yes (Hospitalization, Disabling, Other)
  Sender: FDA-Public Use
  Company Number: 001-0945-980292

PATIENT
  Age: 51 Year
  Sex: Male

DRUGS (8)
  1. NEURONTIN [Suspect]
     Indication: PAIN
     Dosage: 1200 MG (300 MG, 4 IN 1 D), ORAL
     Route: 048
     Dates: start: 19960919, end: 19980319
  2. ALL OTHER THERAPEUTIC PRODUCTS (ALL OTHER THERAPEUTIC PRODUCTS) [Suspect]
     Indication: ILL-DEFINED DISORDER
     Dosage: UNKNOWN
     Route: 065
  3. SOMA [Concomitant]
  4. HYDROCODONE (HYDROCODONE) [Concomitant]
  5. AMITRIPTYLINE HCL [Concomitant]
  6. PROZAC [Concomitant]
  7. DOXEPIN HCL [Concomitant]
  8. DURACT [Concomitant]

REACTIONS (49)
  - ACUTE RESPIRATORY DISTRESS SYNDROME [None]
  - ANAEMIA [None]
  - ANXIETY [None]
  - ASTHENIA [None]
  - CARDIOPULMONARY FAILURE [None]
  - CHEST PAIN [None]
  - CHRONIC OBSTRUCTIVE PULMONARY DISEASE [None]
  - COAGULOPATHY [None]
  - CONDITION AGGRAVATED [None]
  - CONFUSIONAL STATE [None]
  - DELIRIUM [None]
  - DEPRESSION [None]
  - DYSGEUSIA [None]
  - DYSURIA [None]
  - EMOTIONAL DISTRESS [None]
  - ENCEPHALOPATHY [None]
  - EPIDIDYMITIS [None]
  - FALL [None]
  - FEELING ABNORMAL [None]
  - HEMIPARESIS [None]
  - HYPERNATRAEMIA [None]
  - HYPOGLYCAEMIA [None]
  - HYPOKALAEMIA [None]
  - IMPAIRED SELF-CARE [None]
  - IMPAIRED WORK ABILITY [None]
  - INFLUENZA LIKE ILLNESS [None]
  - INSOMNIA [None]
  - LETHARGY [None]
  - MALAISE [None]
  - MALNUTRITION [None]
  - MUSCLE ATROPHY [None]
  - MUSCULAR WEAKNESS [None]
  - NAUSEA [None]
  - NEOPLASM MALIGNANT [None]
  - NEUROMUSCULAR BLOCK PROLONGED [None]
  - PAIN [None]
  - PANCREATITIS [None]
  - PANCREATITIS ACUTE [None]
  - PNEUMONIA MYCOPLASMAL [None]
  - PNEUMONIA PRIMARY ATYPICAL [None]
  - PNEUMONITIS [None]
  - REFUSAL OF TREATMENT BY PATIENT [None]
  - RENAL FAILURE [None]
  - RESPIRATORY FAILURE [None]
  - SEPSIS [None]
  - SUICIDAL IDEATION [None]
  - SWOLLEN TONGUE [None]
  - UPPER RESPIRATORY TRACT INFECTION [None]
  - VIRAL INFECTION [None]
